FAERS Safety Report 7033929-9 (Version None)
Quarter: 2010Q4

REPORT INFORMATION
  Report Type: 
  Country: None (occurrence: None)
  Receive Date: 20101005
  Receipt Date: 20100920
  Transmission Date: 20110411
  Serious: Yes (Hospitalization)
  Sender: FDA-Public Use
  Company Number: 2010AT000030

PATIENT
  Age: 72 Year
  Sex: Male

DRUGS (7)
  1. ALPROSTADIL [Suspect]
     Indication: PERIPHERAL ARTERIAL OCCLUSIVE DISEASE
     Dosage: 40 UG;BID, 60 UG:BID
     Dates: start: 20060831, end: 20060907
  2. ALPROSTADIL [Suspect]
     Indication: PERIPHERAL ARTERIAL OCCLUSIVE DISEASE
     Dosage: 40 UG;BID, 60 UG:BID
     Dates: start: 20060925, end: 20061017
  3. ASPIRIN [Concomitant]
  4. CSE-INHIBITOR [Concomitant]
  5. ACE-INHIBITOR NOS [Concomitant]
  6. ANTI-BLOCKER [Concomitant]
  7. INSULIN [Concomitant]

REACTIONS (2)
  - CARDIOVASCULAR DISORDER [None]
  - PERIPHERAL VASCULAR DISORDER [None]
